FAERS Safety Report 9450138 (Version 3)
Quarter: 2015Q1

REPORT INFORMATION
  Report Type: Spontaneous
  Country: US (occurrence: US)
  Receive Date: 20130809
  Receipt Date: 20150204
  Transmission Date: 20150721
  Serious: No
  Sender: FDA-Public Use
  Company Number: US-GLAXOSMITHKLINE-A0886134A

PATIENT
  Sex: Male

DRUGS (7)
  1. PROPOXYPHENE/APAP [Concomitant]
  2. REQUIP XL [Suspect]
     Active Substance: ROPINIROLE HYDROCHLORIDE
     Indication: PARKINSON^S DISEASE
     Dosage: 36 MG, 1D
     Route: 048
     Dates: start: 201006
  3. ARIXTRA [Concomitant]
     Active Substance: FONDAPARINUX SODIUM
  4. ALLOPURINOL. [Concomitant]
     Active Substance: ALLOPURINOL
  5. HYDROCODONE BITARTRATE AND ACETAMINOPHEN [Concomitant]
     Active Substance: ACETAMINOPHEN\HYDROCODONE BITARTRATE
  6. CARBIDOPA/LEVODOPA [Concomitant]
     Active Substance: CARBIDOPA\LEVODOPA
  7. SYNTHROID [Concomitant]
     Active Substance: LEVOTHYROXINE SODIUM

REACTIONS (7)
  - Nausea [Unknown]
  - Drug administration error [Unknown]
  - Initial insomnia [Unknown]
  - Vomiting [Unknown]
  - Surgery [Unknown]
  - Tremor [Unknown]
  - Drug dose omission [Unknown]
